FAERS Safety Report 15500131 (Version 2)
Quarter: 2024Q3

REPORT INFORMATION
  Report Type: Spontaneous
  Country: US (occurrence: US)
  Receive Date: 20181015
  Receipt Date: 20240918
  Transmission Date: 20241016
  Serious: No
  Sender: COLLEGIUM PHARMACEUTICAL
  Company Number: US-COLLEGIUM PHARMACEUTICAL, INC.-US-2018DEP000739

PATIENT

DRUGS (4)
  1. NUCYNTA ER [Suspect]
     Active Substance: TAPENTADOL HYDROCHLORIDE
     Indication: Neck pain
     Dosage: 100 MG, BID
     Route: 048
     Dates: start: 20170725, end: 20170725
  2. NUCYNTA ER [Suspect]
     Active Substance: TAPENTADOL HYDROCHLORIDE
     Indication: Arthralgia
     Dosage: 200 MG, UNK
     Route: 048
     Dates: start: 20170726, end: 20170726
  3. NUCYNTA ER [Suspect]
     Active Substance: TAPENTADOL HYDROCHLORIDE
     Indication: Pain in extremity
     Dosage: 100 MG, BID
     Route: 048
     Dates: start: 20170727, end: 20170729
  4. NUCYNTA ER [Suspect]
     Active Substance: TAPENTADOL HYDROCHLORIDE
     Dosage: UNK, TWO TABLETS AT A TIME
     Route: 065
     Dates: start: 2017, end: 2018

REACTIONS (7)
  - Sleep disorder [Recovered/Resolved]
  - Asthenopia [Unknown]
  - Fall [Recovered/Resolved]
  - Injury [Recovered/Resolved]
  - Disorientation [Unknown]
  - Drug ineffective [Unknown]
  - Therapy change [Recovered/Resolved]

NARRATIVE: CASE EVENT DATE: 20170725
